FAERS Safety Report 5955347-4 (Version None)
Quarter: 2008Q4

REPORT INFORMATION
  Report Type: 
  Country: None (occurrence: None)
  Receive Date: 20081112
  Receipt Date: 20081029
  Transmission Date: 20090506
  Serious: Yes (Hospitalization)
  Sender: FDA-Public Use
  Company Number: 004660

PATIENT
  Age: 84 Year
  Sex: Female
  Weight: 56 kg

DRUGS (1)
  1. PLETAL [Suspect]
     Indication: ARTERIAL OCCLUSIVE DISEASE
     Dosage: 100 MG, UNKNOWN, ORAL
     Route: 048
     Dates: start: 20080930, end: 20081009

REACTIONS (2)
  - ATRIAL TACHYCARDIA [None]
  - SUPRAVENTRICULAR TACHYARRHYTHMIA [None]
